FAERS Safety Report 12369685 (Version 1)
Quarter: 2016Q2

REPORT INFORMATION
  Report Type: Spontaneous
  Country: AT (occurrence: AT)
  Receive Date: 20160516
  Receipt Date: 20160516
  Transmission Date: 20160815
  Serious: Yes (Hospitalization)
  Sender: FDA-Public Use
  Company Number: AT-ROCHE-1757337

PATIENT
  Age: 57 Year
  Sex: Male

DRUGS (8)
  1. FLUOROURACIL. [Suspect]
     Active Substance: FLUOROURACIL
     Indication: COLORECTAL CANCER METASTATIC
     Dosage: PALLIATIVE THERAPY
     Route: 065
     Dates: start: 201104, end: 201104
  2. FLUOROURACIL. [Suspect]
     Active Substance: FLUOROURACIL
     Indication: METASTASES TO LIVER
  3. FOLINIC ACID [Suspect]
     Active Substance: LEUCOVORIN
     Indication: METASTASES TO LIVER
  4. AVASTIN [Suspect]
     Active Substance: BEVACIZUMAB
     Indication: METASTASES TO LIVER
  5. AVASTIN [Suspect]
     Active Substance: BEVACIZUMAB
     Indication: COLORECTAL CANCER METASTATIC
     Dosage: PALLIATIVE THERAPY
     Route: 065
     Dates: start: 201104, end: 201108
  6. FOLINIC ACID [Suspect]
     Active Substance: LEUCOVORIN
     Indication: COLORECTAL CANCER METASTATIC
     Dosage: PALLIATIVE THERAPY
     Route: 065
     Dates: start: 201104, end: 201104
  7. IRINOTECAN [Suspect]
     Active Substance: IRINOTECAN
     Indication: COLORECTAL CANCER METASTATIC
     Dosage: PALLIATIVE THERAPY
     Route: 065
     Dates: start: 201104, end: 201104
  8. IRINOTECAN [Suspect]
     Active Substance: IRINOTECAN
     Indication: METASTASES TO LIVER

REACTIONS (5)
  - Ileus paralytic [Unknown]
  - Hepatic function abnormal [Unknown]
  - Blood bilirubin increased [Not Recovered/Not Resolved]
  - Post procedural sepsis [Unknown]
  - Steatohepatitis [Unknown]

NARRATIVE: CASE EVENT DATE: 201109
